FAERS Safety Report 14901511 (Version 6)
Quarter: 2022Q1

REPORT INFORMATION
  Report Type: Report from Study
  Country: US (occurrence: US)
  Receive Date: 20180516
  Receipt Date: 20220216
  Transmission Date: 20220423
  Serious: Yes (Hospitalization, Other)
  Sender: FDA-Public Use
  Company Number: US-TAKEDA-2018TUS009582

PATIENT
  Age: 42 Year
  Sex: Male
  Weight: 95 kg

DRUGS (5)
  1. PONATINIB [Suspect]
     Active Substance: PONATINIB
     Indication: Chronic myeloid leukaemia
     Dosage: 30 MILLIGRAM, QD
     Route: 048
     Dates: start: 201504
  2. PONATINIB [Suspect]
     Active Substance: PONATINIB
     Dosage: 45 MILLIGRAM, QD
     Route: 065
     Dates: start: 20200925
  3. PEPCID [Concomitant]
     Active Substance: FAMOTIDINE
     Indication: Ulcer
     Dosage: UNK
     Route: 065
  4. PEPCID [Concomitant]
     Active Substance: FAMOTIDINE
     Indication: Abdominal pain upper
  5. TYLENOL [Concomitant]
     Active Substance: ACETAMINOPHEN
     Indication: Headache
     Dosage: UNK
     Route: 065

REACTIONS (19)
  - Haematochezia [Unknown]
  - Urinary retention [Unknown]
  - Ulcer [Recovered/Resolved]
  - Tuberculin test positive [Unknown]
  - Red cell distribution width increased [Unknown]
  - Monocyte count increased [Unknown]
  - Skin ulcer [Unknown]
  - Cardiac disorder [Unknown]
  - Heart rate increased [Unknown]
  - Exercise tolerance decreased [Unknown]
  - Contusion [Unknown]
  - Blood pressure increased [Unknown]
  - Abdominal pain [Unknown]
  - Constipation [Unknown]
  - Fatigue [Unknown]
  - Abdominal pain upper [Not Recovered/Not Resolved]
  - Insomnia [Not Recovered/Not Resolved]
  - Acne [Unknown]
  - Product dose omission issue [Unknown]

NARRATIVE: CASE EVENT DATE: 20210501
